FAERS Safety Report 13615951 (Version 3)
Quarter: 2017Q4

REPORT INFORMATION
  Report Type: Spontaneous
  Country: CH (occurrence: CH)
  Receive Date: 20170606
  Receipt Date: 20171027
  Transmission Date: 20180320
  Serious: Yes (Other)
  Sender: FDA-Public Use
  Company Number: CH-UCBSA-2017021783

PATIENT
  Age: 42 Year
  Sex: Female

DRUGS (4)
  1. CIMZIA [Suspect]
     Active Substance: CERTOLIZUMAB PEGOL
     Indication: ARTHRITIS ENTEROPATHIC
     Dosage: 400 MG, EV 4 WEEKS
     Dates: start: 201102, end: 20170308
  2. SALAZOPYRIN [Concomitant]
     Active Substance: SULFASALAZINE
     Indication: ARTHRITIS ENTEROPATHIC
     Dosage: 1 G, 2X/DAY (BID)
     Route: 048
     Dates: start: 201010
  3. FOLIC ACID. [Concomitant]
     Active Substance: FOLIC ACID
     Indication: PRODUCT USED FOR UNKNOWN INDICATION
     Dosage: 5 MG, WEEKLY (QW)
     Route: 048
     Dates: start: 201010
  4. CALCIUM CARBONATE W/COLECALCIFEROL [Concomitant]
     Active Substance: CALCIUM CARBONATE\CHOLECALCIFEROL
     Indication: PRODUCT USED FOR UNKNOWN INDICATION
     Dosage: UNK, ONCE DAILY (QD)
     Route: 048

REACTIONS (3)
  - Myelitis [Recovered/Resolved with Sequelae]
  - Headache [Recovering/Resolving]
  - Vomiting [Recovering/Resolving]

NARRATIVE: CASE EVENT DATE: 20170310
